FAERS Safety Report 6792481-3 (Version None)
Quarter: 2010Q2

REPORT INFORMATION
  Report Type: 
  Country: None (occurrence: None)
  Receive Date: 20100624
  Receipt Date: 20080807
  Transmission Date: 20101027
  Serious: No
  Sender: FDA-Public Use
  Company Number: US-PFIZER INC-2008066932

PATIENT
  Age: 58 Year
  Sex: Female
  Weight: 61.23 kg

DRUGS (5)
  1. XALATAN [Suspect]
     Indication: INTRAOCULAR PRESSURE TEST ABNORMAL
     Dates: start: 20080723
  2. DRUG, UNSPECIFIED [Concomitant]
  3. ESTROGENS [Concomitant]
  4. PROGESTERONE [Concomitant]
  5. VITAMINS [Concomitant]

REACTIONS (1)
  - HEADACHE [None]
